FAERS Safety Report 16644565 (Version 2)
Quarter: 2021Q1

REPORT INFORMATION
  Report Type: Report from Study
  Country: GB (occurrence: GB)
  Receive Date: 20190729
  Receipt Date: 20210303
  Transmission Date: 20210419
  Serious: Yes (Hospitalization, Other)
  Sender: FDA-Public Use
  Company Number: GB-MYLANLABS-2019M1069839

PATIENT
  Age: 75 Year
  Sex: Female

DRUGS (46)
  1. BISOPROLOL [Concomitant]
     Active Substance: BISOPROLOL
     Dosage: 2.5 MILLIGRAM, QD
     Route: 048
     Dates: start: 201603
  2. IOPIDINE [Concomitant]
     Active Substance: APRACLONIDINE HYDROCHLORIDE
     Dosage: 1 GTT DROPS
     Route: 047
     Dates: start: 20160601, end: 20160629
  3. RAMIPRIL. [Concomitant]
     Active Substance: RAMIPRIL
     Dosage: UNK UNK, QD
     Route: 048
     Dates: start: 20160415, end: 201605
  4. BISOPROLOL [Concomitant]
     Active Substance: BISOPROLOL
     Indication: EJECTION FRACTION DECREASED
     Dosage: 2.5 MILLIGRAM
     Route: 048
     Dates: start: 20160415
  5. BISOPROLOL [Concomitant]
     Active Substance: BISOPROLOL
     Dosage: 1.25 MILLIGRAM
     Route: 048
     Dates: start: 20160121
  6. LISINOPRIL. [Concomitant]
     Active Substance: LISINOPRIL
     Indication: DYSPNOEA
     Dosage: 5 MILLIGRAM
     Route: 048
     Dates: start: 20151218, end: 20160121
  7. METOCLOPRAMIDE. [Concomitant]
     Active Substance: METOCLOPRAMIDE
     Indication: PROPHYLAXIS
     Dosage: 10 MILLIGRAM, PRN,AS NEEDED
     Route: 048
     Dates: start: 20150721, end: 20150727
  8. DIGOXIN. [Concomitant]
     Active Substance: DIGOXIN
     Dosage: 62.5 MICROGRAM
     Route: 048
     Dates: start: 20160121
  9. ONDANSETRON [Concomitant]
     Active Substance: ONDANSETRON
     Indication: PROPHYLAXIS
     Dosage: 8 MILLIGRAM, BID,TWICE DAILY FOR 3 DAYS POST CHEMOTHERAPY
     Route: 048
     Dates: start: 20150721, end: 20150722
  10. CALCICHEW [Concomitant]
     Active Substance: CALCIUM CARBONATE
     Indication: OSTEOPENIA
     Dosage: 500 MILLIGRAM, BID
     Route: 048
     Dates: start: 20180205
  11. DIAMOX                             /00016901/ [Concomitant]
     Active Substance: ACETAZOLAMIDE
     Dosage: 1 GTT DROPS
     Route: 047
     Dates: start: 20160601, end: 20160604
  12. FUROSEMIDE. [Concomitant]
     Active Substance: FUROSEMIDE
     Indication: DYSPNOEA
     Dosage: 100 MILLIGRAM, QD
     Route: 042
     Dates: start: 20151206, end: 20151207
  13. FUROSEMIDE. [Concomitant]
     Active Substance: FUROSEMIDE
     Dosage: 50 MILLIGRAM, QD
     Route: 042
     Dates: start: 20151206, end: 20151207
  14. INDAPAMIDE. [Concomitant]
     Active Substance: INDAPAMIDE
     Indication: PROPHYLAXIS
     Dosage: 2.5 MILLIGRAM, QD
     Route: 048
     Dates: start: 2016
  15. TRIMETHOPRIM. [Concomitant]
     Active Substance: TRIMETHOPRIM
     Indication: URINARY TRACT INFECTION
     Dosage: 200 MILLIGRAM, QD
     Route: 048
     Dates: start: 20181019, end: 20181023
  16. PERTUZUMAB. [Suspect]
     Active Substance: PERTUZUMAB
     Indication: BREAST CANCER
     Dosage: 420 MILLIGRAM, Q3W
     Route: 042
     Dates: start: 20150721
  17. FELODIPINE. [Concomitant]
     Active Substance: FELODIPINE
     Dosage: 2.5 MILLIGRAM, QD
     Route: 048
     Dates: start: 20161030
  18. PARACETAMOL [Concomitant]
     Active Substance: ACETAMINOPHEN
     Indication: PREMEDICATION
     Dosage: 1 GRAM, Q3W
     Route: 048
     Dates: start: 20150721
  19. PARACETAMOL [Concomitant]
     Active Substance: ACETAMINOPHEN
     Dosage: 1 GRAM, Q3W
     Route: 048
     Dates: start: 20160531
  20. DALTEPARIN [Concomitant]
     Active Substance: DALTEPARIN
     Indication: PLEURAL EFFUSION
     Dosage: UNK
     Route: 058
     Dates: start: 20151206, end: 20151206
  21. FENTANYL. [Concomitant]
     Active Substance: FENTANYL
     Dosage: 200 MICROGRAM
     Route: 042
     Dates: start: 20160531, end: 20160601
  22. ALENDRONIC ACID [Concomitant]
     Active Substance: ALENDRONIC ACID
     Indication: OSTEOPENIA
     Dosage: 70 MILLIGRAM, QW
     Route: 048
     Dates: start: 20180205
  23. CANDESARTAN. [Concomitant]
     Active Substance: CANDESARTAN
     Dosage: 32 MILLIGRAM, QD
     Route: 048
     Dates: start: 2013
  24. CO?DYDRAMOL [Concomitant]
     Active Substance: ACETAMINOPHEN\DIHYDROCODEINE
     Indication: BACK PAIN
     Dosage: 500 MILLIGRAM, PRN
     Route: 048
     Dates: start: 201701
  25. ANASTROZOLE. [Suspect]
     Active Substance: ANASTROZOLE
     Indication: BREAST CANCER
     Dosage: 1 MILLIGRAM, QD
     Route: 048
     Dates: start: 20160115
  26. DOCETAXEL. [Suspect]
     Active Substance: DOCETAXEL
     Indication: BREAST CANCER
     Dosage: 170 MILLIGRAM, Q3W
     Route: 042
     Dates: start: 20150721, end: 20150807
  27. RAMIPRIL. [Concomitant]
     Active Substance: RAMIPRIL
     Dosage: 3.75 MILLIGRAM, QD
     Route: 048
     Dates: start: 201605
  28. TOBRADEX [Concomitant]
     Active Substance: DEXAMETHASONE\TOBRAMYCIN
     Dosage: 1 GTT DROPS
     Route: 047
     Dates: start: 20160601
  29. CLOPIDOGREL [Concomitant]
     Active Substance: CLOPIDOGREL BISULFATE
     Indication: PROPHYLAXIS
     Dosage: 75 MILLIGRAM, QD
     Route: 048
  30. ORAMORPH [Concomitant]
     Active Substance: MORPHINE SULFATE
     Indication: PAIN
     Dosage: 5 MILLIGRAM, PRN
     Route: 048
     Dates: start: 20190405
  31. TRASTUZUMAB. [Suspect]
     Active Substance: TRASTUZUMAB
     Indication: BREAST CANCER
     Dosage: 600 MILLIGRAM, Q3W
     Route: 058
     Dates: start: 20150721, end: 20151126
  32. RAMIPRIL. [Concomitant]
     Active Substance: RAMIPRIL
     Dosage: 7.5 MILLIGRAM, QD
     Route: 048
     Dates: start: 201605
  33. RAMIPRIL. [Concomitant]
     Active Substance: RAMIPRIL
     Dosage: 5 MILLIGRAM, BID
     Route: 048
     Dates: start: 2016
  34. FUROSEMIDE. [Concomitant]
     Active Substance: FUROSEMIDE
     Dosage: 40 MILLIGRAM
     Route: 048
     Dates: start: 20151211
  35. MYDRILATE [Concomitant]
     Active Substance: CYCLOPENTOLATE HYDROCHLORIDE
     Dosage: 1 GTT DROPS
     Route: 047
     Dates: start: 20160601, end: 20160610
  36. LISINOPRIL. [Concomitant]
     Active Substance: LISINOPRIL
     Dosage: 2.5 MILLIGRAM
     Route: 048
     Dates: start: 20160121, end: 20160415
  37. CHLORPHENAMINE [Concomitant]
     Active Substance: CHLORPHENIRAMINE MALEATE
     Indication: PREMEDICATION
     Dosage: 10 MILLIGRAM, Q3W
     Route: 042
     Dates: start: 20150721, end: 20151126
  38. ATORVASTATIN [Concomitant]
     Active Substance: ATORVASTATIN
     Indication: PROPHYLAXIS
     Dosage: 20 MILLIGRAM, QD
     Route: 048
  39. ATORVASTATIN [Concomitant]
     Active Substance: ATORVASTATIN
     Dosage: 20 MILLIGRAM, QD
     Route: 048
     Dates: start: 20161130
  40. PREDNISOLONE. [Concomitant]
     Active Substance: PREDNISOLONE
     Dosage: 40 MILLIGRAM, QD
     Route: 048
     Dates: start: 20160601, end: 20160606
  41. DEXAMETHASONE. [Concomitant]
     Active Substance: DEXAMETHASONE
     Indication: PROPHYLAXIS
     Dosage: 8 MILLIGRAM, BID,BD  FOR  3 DAYS
     Route: 048
     Dates: start: 20150721, end: 20150722
  42. RAMIPRIL. [Concomitant]
     Active Substance: RAMIPRIL
     Indication: PROPHYLAXIS
     Dosage: 2 DOSAGE FORM
     Route: 048
     Dates: start: 20160415, end: 201605
  43. BISOPROLOL [Concomitant]
     Active Substance: BISOPROLOL
     Indication: PROPHYLAXIS
     Dosage: 2.5 MILLIGRAM
     Route: 048
     Dates: start: 20160121
  44. COCODAMOL [Concomitant]
     Active Substance: ACETAMINOPHEN\CODEINE PHOSPHATE
     Dosage: 500 MILLIGRAM, PRN,AS NEEDED
     Route: 048
     Dates: start: 20150720
  45. CLOPIDOGREL [Concomitant]
     Active Substance: CLOPIDOGREL BISULFATE
     Dosage: 75 MILLIGRAM, QD
     Route: 048
     Dates: start: 20161130
  46. LIDOCAINE. [Concomitant]
     Active Substance: LIDOCAINE
     Indication: PAIN
     Dosage: UNK UNK, PRN (AS NECESSARY)
     Route: 062
     Dates: start: 20190405

REACTIONS (14)
  - Ejection fraction decreased [Recovered/Resolved]
  - Fatigue [Not Recovered/Not Resolved]
  - Retinal detachment [Recovered/Resolved with Sequelae]
  - Weight decreased [Recovered/Resolved]
  - Constipation [Recovered/Resolved]
  - Presyncope [Recovered/Resolved]
  - Alopecia [Recovered/Resolved]
  - Back pain [Recovered/Resolved]
  - Dyspnoea [Recovered/Resolved]
  - Nausea [Recovered/Resolved]
  - Pleural effusion [Recovered/Resolved]
  - Dizziness [Recovered/Resolved]
  - Diarrhoea [Recovered/Resolved]
  - Condition aggravated [Recovered/Resolved]

NARRATIVE: CASE EVENT DATE: 20150721
